FAERS Safety Report 18500777 (Version 1)
Quarter: 2020Q4

REPORT INFORMATION
  Report Type: Spontaneous
  Country: US (occurrence: US)
  Receive Date: 20201113
  Receipt Date: 20201113
  Transmission Date: 20210114
  Serious: Yes (Other)
  Sender: FDA-Public Use
  Company Number: US-PFIZER INC-2020446169

PATIENT
  Age: 65 Year
  Sex: Female
  Weight: 68.04 kg

DRUGS (1)
  1. XANAX [Suspect]
     Active Substance: ALPRAZOLAM
     Indication: PANIC DISORDER
     Dosage: UNK

REACTIONS (6)
  - Eye haemorrhage [Unknown]
  - Stress [Unknown]
  - Impaired driving ability [Unknown]
  - Retinal tear [Unknown]
  - Eye disorder [Unknown]
  - Illness [Unknown]

NARRATIVE: CASE EVENT DATE: 2016
